FAERS Safety Report 6291121-X (Version None)
Quarter: 2009Q3

REPORT INFORMATION
  Report Type: 
  Country: None (occurrence: None)
  Receive Date: 20090730
  Receipt Date: 20090722
  Transmission Date: 20100115
  Serious: Yes (Disabling)
  Sender: FDA-Public Use
  Company Number: A0799215A

PATIENT
  Age: 63 Year
  Sex: Female

DRUGS (2)
  1. SERETIDE [Suspect]
     Indication: ASTHMA
     Route: 065
  2. CLONAZEPAM [Concomitant]

REACTIONS (3)
  - BLINDNESS UNILATERAL [None]
  - DIZZINESS [None]
  - EYE OPERATION [None]
